FAERS Safety Report 5423329-7 (Version None)
Quarter: 2007Q3

REPORT INFORMATION
  Report Type: 
  Country: None (occurrence: None)
  Receive Date: 20070823
  Receipt Date: 20070816
  Transmission Date: 20080115
  Serious: Yes (Other)
  Sender: FDA-Public Use
  Company Number: PHEH2007US11263

PATIENT
  Sex: Female

DRUGS (3)
  1. ZOMETA [Suspect]
     Dates: start: 20030601, end: 20051101
  2. FOSAMAX [Suspect]
     Dates: start: 19950101
  3. AREDIA [Suspect]
     Dates: start: 19961101, end: 20050101

REACTIONS (4)
  - EMOTIONAL DISTRESS [None]
  - INJURY [None]
  - OSTEONECROSIS [None]
  - PAIN [None]
